FAERS Safety Report 25480379 (Version 2)
Quarter: 2025Q3

REPORT INFORMATION
  Report Type: Spontaneous
  Country: CA (occurrence: CA)
  Receive Date: 20250625
  Receipt Date: 20250806
  Transmission Date: 20251021
  Serious: Yes (Life-Threatening, Hospitalization, Other)
  Sender: PFIZER
  Company Number: CA-PFIZER INC-202500127007

PATIENT
  Age: 14 Year
  Sex: Female
  Weight: 43 kg

DRUGS (5)
  1. CYTARABINE [Suspect]
     Active Substance: CYTARABINE
     Indication: Chemotherapy
  2. METHOTREXATE SODIUM [Suspect]
     Active Substance: METHOTREXATE SODIUM
     Indication: Chemotherapy
  3. VINCRISTINE SULFATE [Suspect]
     Active Substance: VINCRISTINE SULFATE
     Indication: Chemotherapy
  4. PEGASPARGASE [Suspect]
     Active Substance: PEGASPARGASE
     Indication: Chemotherapy
     Route: 042
  5. THIOGUANINE [Suspect]
     Active Substance: THIOGUANINE
     Indication: Chemotherapy

REACTIONS (1)
  - Febrile neutropenia [Recovered/Resolved]
